FAERS Safety Report 7050597-0 (Version None)
Quarter: 2010Q4

REPORT INFORMATION
  Report Type: 
  Country: None (occurrence: None)
  Receive Date: 20101018
  Receipt Date: 20101008
  Transmission Date: 20110411
  Serious: Yes (Hospitalization, Other)
  Sender: FDA-Public Use
  Company Number: US-ELI_LILLY_AND_COMPANY-US200903003315

PATIENT
  Sex: Female
  Weight: 86.168 kg

DRUGS (15)
  1. BYETTA [Suspect]
     Dosage: UNK, UNKNOWN
     Route: 065
     Dates: start: 20060601, end: 20061001
  2. METFORMIN HCL [Concomitant]
     Indication: TYPE 2 DIABETES MELLITUS
     Dosage: 500 MG, 3/D
     Route: 065
  3. KLOR-CON [Concomitant]
     Indication: MEDICAL DIET
     Dosage: 10 MEQ, DAILY (1/D)
     Route: 065
  4. CLINDAMYCIN [Concomitant]
     Indication: BACTERIAL INFECTION
     Dosage: UNK, UNKNOWN
     Route: 065
  5. AVAPRO [Concomitant]
     Indication: HYPERTENSION
     Dosage: 150 MG, DAILY (1/D)
     Route: 065
  6. VYTORIN [Concomitant]
     Indication: BLOOD CHOLESTEROL INCREASED
     Dosage: 10/10MG, DAILY (1/D)
     Route: 065
  7. TRAMADOL HCL [Concomitant]
     Indication: PAIN
     Dosage: UNK, UNKNOWN
     Route: 065
  8. ZYRTEC [Concomitant]
     Indication: HYPERSENSITIVITY
     Dosage: 10 MG, DAILY (1/D)
     Route: 065
  9. DETROL [Concomitant]
     Indication: HYPERTONIC BLADDER
     Dosage: UNK, UNKNOWN
     Route: 065
  10. ACIPHEX [Concomitant]
     Indication: GASTROOESOPHAGEAL REFLUX DISEASE
     Dosage: UNK, UNKNOWN
     Route: 065
  11. LYRICA [Concomitant]
     Indication: NEURALGIA
     Dosage: UNK, 3 PILLS AT NIGHT
     Route: 065
  12. NASACORT [Concomitant]
     Indication: HYPERSENSITIVITY
     Dosage: UNK, UNKNOWN
     Route: 065
  13. LANTUS [Concomitant]
     Indication: DIABETES MELLITUS
     Dosage: 70 U, DAILY (1/D)
     Route: 065
  14. HYDROCODONE [Concomitant]
     Indication: PAIN
     Dosage: UNK, UNKNOWN
     Route: 065
  15. FUROSEMIDE [Concomitant]
     Indication: HYPERTENSION
     Dosage: 40 MG, EACH MORNING
     Route: 065

REACTIONS (4)
  - OFF LABEL USE [None]
  - PANCREATITIS [None]
  - PANCREATITIS CHRONIC [None]
  - RENAL INJURY [None]
